FAERS Safety Report 5370380-1 (Version None)
Quarter: 2007Q2

REPORT INFORMATION
  Report Type: 
  Country: None (occurrence: None)
  Receive Date: 20070626
  Receipt Date: 20061205
  Transmission Date: 20071010
  Serious: No
  Sender: FDA-Public Use
  Company Number: US-AMGEN-KDL194261

PATIENT
  Sex: Male

DRUGS (10)
  1. ARANESP [Suspect]
     Indication: DIALYSIS
     Dates: start: 20060911
  2. HECTORAL [Concomitant]
  3. DILANTIN [Concomitant]
  4. TOPRAL [Concomitant]
  5. SYNTHROID [Concomitant]
  6. PHOSLO [Concomitant]
  7. NEPHRO-CAPS [Concomitant]
  8. LIPITOR [Concomitant]
  9. PRILOSEC [Concomitant]
  10. ASPIRIN [Concomitant]

REACTIONS (1)
  - THERAPEUTIC RESPONSE DECREASED [None]
